FAERS Safety Report 14288382 (Version 1)
Quarter: 2017Q4

REPORT INFORMATION
  Report Type: Spontaneous
  Country: US (occurrence: US)
  Receive Date: 20171215
  Receipt Date: 20171215
  Transmission Date: 20180321
  Serious: No
  Sender: FDA-Public Use
  Company Number: US-CELGENEUS-USA-20171203645

PATIENT
  Sex: Female
  Weight: 58 kg

DRUGS (4)
  1. OTEZLA [Suspect]
     Active Substance: APREMILAST
     Dosage: (CUT TABLETS INTO HALF)
     Route: 048
     Dates: start: 2017
  2. OTEZLA [Suspect]
     Active Substance: APREMILAST
     Indication: PSORIASIS
     Dosage: TITRATION
     Route: 048
     Dates: start: 201707
  3. OTEZLA [Suspect]
     Active Substance: APREMILAST
     Route: 048
     Dates: start: 2017
  4. OTEZLA [Suspect]
     Active Substance: APREMILAST
     Dosage: TITRATION DOSE
     Route: 048
     Dates: start: 2017

REACTIONS (3)
  - Dyspnoea [Recovered/Resolved]
  - Diarrhoea [Recovered/Resolved]
  - Abdominal pain upper [Recovered/Resolved]

NARRATIVE: CASE EVENT DATE: 2017
